FAERS Safety Report 8494532-7 (Version None)
Quarter: 2012Q3

REPORT INFORMATION
  Report Type: 
  Country: None (occurrence: None)
  Receive Date: 20120709
  Receipt Date: 20120627
  Transmission Date: 20120928
  Serious: Yes (Other)
  Sender: FDA-Public Use
  Company Number: CA-JNJFOC-20120614191

PATIENT
  Sex: Male
  Weight: 135 kg

DRUGS (7)
  1. SYMBICORT [Concomitant]
     Route: 065
  2. EZETIMIBE [Concomitant]
     Route: 065
  3. ALLOPURINOL [Concomitant]
     Route: 065
  4. OXYCODONE HCL AND ACETAMINOPHEN [Concomitant]
     Route: 065
  5. REMICADE [Suspect]
     Indication: SARCOIDOSIS
     Route: 042
     Dates: start: 20110801
  6. CRESTOR [Concomitant]
     Route: 065
  7. PREDNISONE [Concomitant]
     Route: 065

REACTIONS (3)
  - ASTHMA [None]
  - INFECTION [None]
  - GOUT [None]
